FAERS Safety Report 5370486-7 (Version None)
Quarter: 2007Q2

REPORT INFORMATION
  Report Type: 
  Country: None (occurrence: None)
  Receive Date: 20070625
  Receipt Date: 20070625
  Transmission Date: 20071010
  Serious: No
  Sender: FDA-Public Use
  Company Number: None

PATIENT
  Age: 20 Year

DRUGS (1)
  1. ZITHROMAX [Suspect]
     Indication: INFECTION
     Dosage: 250 PO
     Route: 048
     Dates: start: 20070510, end: 20070510

REACTIONS (1)
  - ABDOMINAL PAIN [None]
